FAERS Safety Report 15774046 (Version 3)
Quarter: 2019Q1

REPORT INFORMATION
  Report Type: Spontaneous
  Country: US (occurrence: US)
  Receive Date: 20181229
  Receipt Date: 20190314
  Transmission Date: 20190417
  Serious: Yes (Other)
  Sender: FDA-Public Use
  Company Number: PHEH2018US054996

PATIENT
  Sex: Female

DRUGS (4)
  1. IBRANCE [Suspect]
     Active Substance: PALBOCICLIB
     Dosage: 75 MG, QD (21 DAYS ON AND 7 DAYS OFF)
     Route: 048
     Dates: start: 20190106
  2. IBRANCE [Suspect]
     Active Substance: PALBOCICLIB
     Dosage: 100 MG, UNK
     Route: 065
     Dates: start: 20181203
  3. FEMARA [Suspect]
     Active Substance: LETROZOLE
     Indication: PRODUCT USED FOR UNKNOWN INDICATION
     Dosage: UNK UNK, QD
     Route: 048
  4. IBRANCE [Suspect]
     Active Substance: PALBOCICLIB
     Indication: BREAST CANCER
     Dosage: 100 MG, QD (21 DAYS ON AND 7 DAYS OFF)
     Route: 048
     Dates: start: 20181030, end: 20181126

REACTIONS (8)
  - Alopecia [Recovering/Resolving]
  - Red blood cell count decreased [Unknown]
  - Nausea [Unknown]
  - Leukopenia [Recovering/Resolving]
  - Dry eye [Not Recovered/Not Resolved]
  - Anaemia [Not Recovered/Not Resolved]
  - Lip dry [Not Recovered/Not Resolved]
  - Stomatitis [Unknown]
